APPROVED DRUG PRODUCT: TRAMADOL HYDROCHLORIDE
Active Ingredient: TRAMADOL HYDROCHLORIDE
Strength: 25MG
Dosage Form/Route: TABLET;ORAL
Application: A208708 | Product #003
Applicant: RUBICON RESEARCH LTD
Approved: Nov 27, 2023 | RLD: No | RS: No | Type: RX